FAERS Safety Report 11972001 (Version 2)
Quarter: 2016Q1

REPORT INFORMATION
  Report Type: Spontaneous
  Country: US (occurrence: US)
  Receive Date: 20160128
  Receipt Date: 20160224
  Transmission Date: 20160526
  Serious: No
  Sender: FDA-Public Use
  Company Number: US-PFIZER INC-2016009433

PATIENT
  Age: 79 Year
  Sex: Female

DRUGS (6)
  1. ROBITUSSIN SEVERE MULTI-SYMPTOM COUGH COLD FLU [Suspect]
     Active Substance: ACETAMINOPHEN\DEXTROMETHORPHAN HYDROBROMIDE\GUAIFENESIN\PHENYLEPHRINE HYDROCHLORIDE
     Indication: COUGH
     Dosage: 20 ML, ONCE
     Route: 048
     Dates: start: 20160107, end: 2016
  2. METOPROLOL SUCCINATE. [Concomitant]
     Active Substance: METOPROLOL SUCCINATE
     Indication: BLOOD PRESSURE ABNORMAL
     Dosage: 50 MG TABLET ONCE PER DAY
     Route: 048
     Dates: start: 20120109
  3. ROBITUSSIN SEVERE MULTI-SYMPTOM COUGH COLD FLU [Suspect]
     Active Substance: ACETAMINOPHEN\DEXTROMETHORPHAN HYDROBROMIDE\GUAIFENESIN\PHENYLEPHRINE HYDROCHLORIDE
     Indication: NASAL CONGESTION
  4. HALLS SUGAR FREE EXTRA STRONG MENTHOL [Suspect]
     Active Substance: MENTHOL
     Dosage: 2 DF, UNK
     Dates: start: 20160107
  5. ADVIL [Suspect]
     Active Substance: IBUPROFEN
     Indication: ARTHRALGIA
     Dosage: 200 MG, 1 TABLET
     Route: 048
     Dates: end: 2016
  6. COLACE [Concomitant]
     Active Substance: DOCUSATE SODIUM
     Indication: CONSTIPATION
     Dosage: 100 MG CAPSULES, ONE PER DAY
     Route: 048

REACTIONS (1)
  - Diarrhoea [Unknown]

NARRATIVE: CASE EVENT DATE: 20160107
